FAERS Safety Report 23152988 (Version 1)
Quarter: 2023Q4

REPORT INFORMATION
  Report Type: Spontaneous
  Country: None (occurrence: US)
  Receive Date: 20231107
  Receipt Date: 20231107
  Transmission Date: 20240109
  Serious: No
  Sender: FDA-Public Use
  Company Number: US-LGM Pharma Solutions, LLC-2147866

PATIENT
  Age: 53 Year
  Sex: Female

DRUGS (6)
  1. CHENODAL [Suspect]
     Active Substance: CHENODIOL
     Indication: Neuronal ceroid lipofuscinosis
     Route: 048
     Dates: start: 20100306
  2. ESCITALOPRAM [Concomitant]
     Active Substance: ESCITALOPRAM OXALATE
     Route: 065
  3. NUEDEXTA [Concomitant]
     Active Substance: DEXTROMETHORPHAN HYDROBROMIDE\QUINIDINE SULFATE
     Route: 065
  4. MYRBETRIQ [Concomitant]
     Active Substance: MIRABEGRON
     Route: 065
  5. Jevity 1 Cal [Concomitant]
     Route: 065
  6. TRIHEXYPHENIDYL [Concomitant]
     Active Substance: TRIHEXYPHENIDYL
     Route: 065

REACTIONS (2)
  - Menopause [Unknown]
  - Lethargy [Unknown]
